FAERS Safety Report 5289187-9 (Version None)
Quarter: 2007Q1

REPORT INFORMATION
  Report Type: 
  Country: None (occurrence: None)
  Receive Date: 20070119
  Receipt Date: 20060306
  Transmission Date: 20070707
  Serious: Yes (Other)
  Sender: FDA-Public Use
  Company Number: BDI-007994

PATIENT
  Age: 45 Year
  Sex: Male
  Weight: 116 kg

DRUGS (3)
  1. PROHANCE [Suspect]
     Indication: HYPOAESTHESIA
     Dosage: 20 ML ONCE IV
     Route: 042
     Dates: start: 20060302, end: 20060302
  2. PROHANCE [Suspect]
     Indication: NUCLEAR MAGNETIC RESONANCE IMAGING BRAIN
     Dosage: 20 ML ONCE IV
     Route: 042
     Dates: start: 20060302, end: 20060302
  3. VALIUM /00266901/ [Concomitant]

REACTIONS (1)
  - ANAPHYLACTIC REACTION [None]
